FAERS Safety Report 11717532 (Version 3)
Quarter: 2017Q1

REPORT INFORMATION
  Report Type: Spontaneous
  Country: CN (occurrence: CN)
  Receive Date: 20151110
  Receipt Date: 20170220
  Transmission Date: 20170428
  Serious: Yes (Hospitalization, Other)
  Sender: FDA-Public Use
  Company Number: CN-SUN PHARMACEUTICAL INDUSTRIES LTD-2015R1-105609

PATIENT
  Age: 50 Year
  Sex: Female

DRUGS (2)
  1. METHIMAZOLE. [Suspect]
     Active Substance: METHIMAZOLE
     Indication: HYPERTHYROIDISM
     Dosage: UNK
     Route: 065
  2. PROPRANOLOL [Concomitant]
     Active Substance: PROPRANOLOL HYDROCHLORIDE
     Indication: HYPERTHYROIDISM
     Dosage: 10 MG, TID
     Route: 065

REACTIONS (1)
  - Hepatitis cholestatic [Recovered/Resolved]

NARRATIVE: CASE EVENT DATE: 201402
